FAERS Safety Report 21583706 (Version 6)
Quarter: 2024Q4

REPORT INFORMATION
  Report Type: Report from Study
  Country: CA (occurrence: CA)
  Receive Date: 20221111
  Receipt Date: 20241016
  Transmission Date: 20250114
  Serious: Yes (Other)
  Sender: BIOCON
  Company Number: CA-MYLANLABS-2022M1123590

PATIENT

DRUGS (2)
  1. HULIO [Suspect]
     Active Substance: ADALIMUMAB-FKJP
     Indication: Crohn^s disease
     Dosage: 40 MILLIGRAM, QW (WEEKLY)
     Route: 058
     Dates: start: 20211123
  2. HULIO [Suspect]
     Active Substance: ADALIMUMAB-FKJP
     Dosage: 40 MILLIGRAM, QW (WEEKLY)
     Route: 058

REACTIONS (14)
  - Renal failure [Unknown]
  - Intestinal resection [Unknown]
  - Fistula [Unknown]
  - Feeling abnormal [Unknown]
  - Anal fissure [Unknown]
  - Condition aggravated [Unknown]
  - General physical health deterioration [Unknown]
  - Anal fistula [Unknown]
  - Diarrhoea [Unknown]
  - Arthralgia [Unknown]
  - Gastroenteritis viral [Unknown]
  - Abdominal pain [Unknown]
  - Product prescribing error [Unknown]
  - Off label use [Unknown]
